FAERS Safety Report 25610058 (Version 3)
Quarter: 2025Q3

REPORT INFORMATION
  Report Type: Spontaneous
  Country: US (occurrence: US)
  Receive Date: 20250728
  Receipt Date: 20250923
  Transmission Date: 20251021
  Serious: No
  Sender: LUPIN
  Company Number: US-LUPIN PHARMACEUTICALS INC.-2025-06270

PATIENT
  Age: 65 Year

DRUGS (5)
  1. TOLVAPTAN [Suspect]
     Active Substance: TOLVAPTAN
     Indication: Congenital cystic kidney disease
     Route: 065
  2. TOLVAPTAN [Suspect]
     Active Substance: TOLVAPTAN
     Indication: Renal disorder
     Dosage: 60 MG, QD MORNING
     Route: 065
  3. TOLVAPTAN [Suspect]
     Active Substance: TOLVAPTAN
     Indication: Renal disorder
     Dosage: 30 MG, QD 8 HOURS LATER
     Route: 065
  4. TOLVAPTAN [Suspect]
     Active Substance: TOLVAPTAN
     Route: 065
  5. LISINOPRIL [Concomitant]
     Active Substance: LISINOPRIL
     Indication: Blood pressure abnormal
     Route: 065

REACTIONS (3)
  - Tooth disorder [Unknown]
  - Circumstance or information capable of leading to medication error [Unknown]
  - Product substitution issue [Unknown]
